FAERS Safety Report 14569408 (Version 1)
Quarter: 2018Q1

REPORT INFORMATION
  Report Type: Spontaneous
  Country: DK (occurrence: DK)
  Receive Date: 20180223
  Receipt Date: 20180223
  Transmission Date: 20180509
  Serious: Yes (Hospitalization)
  Sender: FDA-Public Use
  Company Number: PHHY2018DK028640

PATIENT
  Age: 31 Year
  Sex: Female

DRUGS (2)
  1. DICILLIN [Suspect]
     Active Substance: DICLOXACILLIN SODIUM
     Indication: STREPTOCOCCAL INFECTION
     Dosage: 2 DF, TID
     Route: 065
     Dates: start: 20180214
  2. DICILLIN [Suspect]
     Active Substance: DICLOXACILLIN SODIUM
     Dosage: 1000 MG, UNK
     Route: 065

REACTIONS (3)
  - Product solubility abnormal [Unknown]
  - Cardiac disorder [Unknown]
  - Feeling abnormal [Not Recovered/Not Resolved]
